FAERS Safety Report 22122641 (Version 2)
Quarter: 2023Q1

REPORT INFORMATION
  Report Type: Report from Study
  Country: US (occurrence: US)
  Receive Date: 20230321
  Receipt Date: 20230330
  Transmission Date: 20230418
  Serious: Yes (Hospitalization)
  Sender: FDA-Public Use
  Company Number: US-BEH-2023156202

PATIENT
  Age: 20 Year
  Sex: Female
  Weight: 104.31 kg

DRUGS (1)
  1. HIZENTRA [Suspect]
     Active Substance: HUMAN IMMUNOGLOBULIN G
     Indication: Primary immunodeficiency syndrome
     Dosage: 25 GRAM, BIW
     Route: 058
     Dates: start: 20230214

REACTIONS (5)
  - Mental disorder [Not Recovered/Not Resolved]
  - No adverse event [Unknown]
  - Therapy interrupted [Unknown]
  - Incorrect dose administered [Unknown]
  - Weight decreased [Not Recovered/Not Resolved]
